FAERS Safety Report 8429413-8 (Version None)
Quarter: 2012Q2

REPORT INFORMATION
  Report Type: 
  Country: None (occurrence: None)
  Receive Date: 20120612
  Receipt Date: 20120607
  Transmission Date: 20120825
  Serious: No
  Sender: FDA-Public Use
  Company Number: US-BAYER-2012-057598

PATIENT
  Age: 23 Year
  Sex: Male
  Weight: 68 kg

DRUGS (2)
  1. ALEVE (CAPLET) [Suspect]
     Indication: MYALGIA
     Dosage: 2 DF, BID
     Route: 048
     Dates: start: 20120522, end: 20120604
  2. ALEVE (CAPLET) [Suspect]
     Dosage: 1 DF, BID
     Route: 048
     Dates: start: 20120605

REACTIONS (1)
  - NO ADVERSE EVENT [None]
